FAERS Safety Report 8898972 (Version 1)
Quarter: 2012Q4

REPORT INFORMATION
  Report Type: 
  Country: PT (occurrence: PT)
  Receive Date: 20121109
  Receipt Date: 20121109
  Transmission Date: 20130627
  Serious: Yes (Other)
  Sender: FDA-Public Use
  Company Number: PT-ELI_LILLY_AND_COMPANY-PT201211002199

PATIENT
  Age: 64 Year
  Sex: Male

DRUGS (2)
  1. CIALIS [Suspect]
     Indication: SEXUAL DYSFUNCTION
     Dosage: 1 DF, single
     Dates: start: 20080623, end: 20080623
  2. SILDENAFIL [Concomitant]
     Dosage: 1 DF, unknown

REACTIONS (3)
  - Dyspnoea [Unknown]
  - Asphyxia [Unknown]
  - Chest discomfort [Unknown]
